FAERS Safety Report 7601634-3 (Version None)
Quarter: 2011Q3

REPORT INFORMATION
  Report Type: 
  Country: None (occurrence: None)
  Receive Date: 20110711
  Receipt Date: 20110701
  Transmission Date: 20111222
  Serious: Yes (Life-Threatening)
  Sender: FDA-Public Use
  Company Number: TR-BRISTOL-MYERS SQUIBB COMPANY-15809650

PATIENT
  Age: 20 Year
  Sex: Female

DRUGS (1)
  1. GLUCOPHAGE [Suspect]
     Dosage: 1 DOSAGE FORM = 15 TABLETS OF METFORMIN 850 MG

REACTIONS (3)
  - INTENTIONAL OVERDOSE [None]
  - SUICIDE ATTEMPT [None]
  - LACTIC ACIDOSIS [None]
